FAERS Safety Report 11156638 (Version 2)
Quarter: 2015Q2

REPORT INFORMATION
  Report Type: Spontaneous
  Country: US (occurrence: US)
  Receive Date: 20150602
  Receipt Date: 20150619
  Transmission Date: 20150821
  Serious: Yes (Other)
  Sender: FDA-Public Use
  Company Number: US-GLAXOSMITHKLINE-US2015GSK073599

PATIENT
  Sex: Female
  Weight: 59 kg

DRUGS (8)
  1. AMBIEN [Concomitant]
     Active Substance: ZOLPIDEM TARTRATE
  2. MINOCYCLINE [Concomitant]
     Active Substance: MINOCYCLINE\MINOCYCLINE HYDROCHLORIDE
  3. SEROQUEL [Suspect]
     Active Substance: QUETIAPINE FUMARATE
     Indication: BIPOLAR DISORDER
     Dosage: UNK, U
     Route: 065
  4. NEURONTIN [Suspect]
     Active Substance: GABAPENTIN
     Indication: BIPOLAR DISORDER
     Dosage: 2100 MG, QD
     Dates: start: 2000
  5. GEODON [Suspect]
     Active Substance: ZIPRASIDONE HYDROCHLORIDE\ZIPRASIDONE MESYLATE
     Indication: BIPOLAR DISORDER
     Dosage: UNK, U
     Route: 065
  6. LAMICTAL [Suspect]
     Active Substance: LAMOTRIGINE
     Indication: BIPOLAR DISORDER
     Dosage: UNK, U
     Route: 065
     Dates: start: 2007
  7. NEURONTIN [Suspect]
     Active Substance: GABAPENTIN
     Dosage: 900 MG, BID
  8. ABILIFY [Suspect]
     Active Substance: ARIPIPRAZOLE
     Indication: BIPOLAR DISORDER
     Dosage: UNK, U

REACTIONS (22)
  - Sleep disorder [Unknown]
  - Activities of daily living impaired [Unknown]
  - Phobia of driving [Unknown]
  - Cardiac flutter [Unknown]
  - Drug ineffective [Unknown]
  - Treatment noncompliance [Unknown]
  - Psychiatric symptom [Unknown]
  - Adverse drug reaction [Unknown]
  - Alopecia [Unknown]
  - Depression [Unknown]
  - Insomnia [Unknown]
  - Hypomania [Not Recovered/Not Resolved]
  - Anxiety [Unknown]
  - Suicidal ideation [Unknown]
  - Abnormal behaviour [Unknown]
  - Mental disorder [Unknown]
  - Palpitations [Unknown]
  - Discomfort [Unknown]
  - Eating disorder [Unknown]
  - Agoraphobia [Unknown]
  - Energy increased [Unknown]
  - Weight increased [Unknown]
